FAERS Safety Report 17961741 (Version 2)
Quarter: 2021Q3

REPORT INFORMATION
  Report Type: Spontaneous
  Country: US (occurrence: US)
  Receive Date: 20200629
  Receipt Date: 20210728
  Transmission Date: 20211014
  Serious: No
  Sender: FDA-Public Use
  Company Number: US-ROCHE-2566620

PATIENT
  Age: 34 Year
  Sex: Female

DRUGS (3)
  1. XELODA [Suspect]
     Active Substance: CAPECITABINE
     Indication: PRODUCT USED FOR UNKNOWN INDICATION
     Route: 048
     Dates: start: 202002
  2. XELODA [Suspect]
     Active Substance: CAPECITABINE
     Route: 048
     Dates: start: 202006
  3. XELODA [Suspect]
     Active Substance: CAPECITABINE
     Route: 048

REACTIONS (19)
  - Abdominal pain [Recovered/Resolved]
  - Pain in extremity [Unknown]
  - Ageusia [Unknown]
  - Stomatitis [Unknown]
  - Blood triglycerides increased [Unknown]
  - Nausea [Unknown]
  - Nail disorder [Unknown]
  - Diarrhoea [Unknown]
  - Constipation [Unknown]
  - Oral herpes [Unknown]
  - Skin exfoliation [Unknown]
  - Insomnia [Unknown]
  - Skin disorder [Unknown]
  - Taste disorder [Unknown]
  - Inflammation [Unknown]
  - Fatigue [Unknown]
  - Palmar-plantar erythrodysaesthesia syndrome [Unknown]
  - Palpitations [Unknown]
  - Dizziness [Unknown]

NARRATIVE: CASE EVENT DATE: 20200302
